FAERS Safety Report 9054675 (Version 3)
Quarter: 2013Q1

REPORT INFORMATION
  Report Type: Spontaneous
  Country: DE (occurrence: DE)
  Receive Date: 20130208
  Receipt Date: 20130226
  Transmission Date: 20140127
  Serious: Yes (Death, Hospitalization)
  Sender: FDA-Public Use
  Company Number: DE-JNJFOC-20130113567

PATIENT
  Sex: Male

DRUGS (3)
  1. HALDOL [Suspect]
     Indication: SCHIZOPHRENIA
     Route: 048
     Dates: start: 20090507, end: 20090508
  2. HALDOL [Suspect]
     Indication: SCHIZOPHRENIA
     Route: 042
     Dates: start: 20090508, end: 20090508
  3. BENPERIDOL [Suspect]
     Indication: PRODUCT USED FOR UNKNOWN INDICATION
     Route: 042
     Dates: start: 20090509

REACTIONS (2)
  - Apnoea [Fatal]
  - Cardiac arrest [Fatal]
